FAERS Safety Report 8485224-9 (Version None)
Quarter: 2012Q3

REPORT INFORMATION
  Report Type: 
  Country: None (occurrence: None)
  Receive Date: 20120703
  Receipt Date: 20120625
  Transmission Date: 20120928
  Serious: Yes (Hospitalization, Other)
  Sender: FDA-Public Use
  Company Number: US-US-EMD SERONO, INC.-7129918

PATIENT
  Sex: Female

DRUGS (7)
  1. MORPHINE SULPHATE IMMEDIATE RELEASE [Concomitant]
     Indication: PRODUCT USED FOR UNKNOWN INDICATION
  2. CYMBALTA [Concomitant]
     Indication: PRODUCT USED FOR UNKNOWN INDICATION
  3. REBIF [Suspect]
     Indication: MULTIPLE SCLEROSIS
     Route: 058
     Dates: start: 20081224, end: 20120401
  4. TOPAMAX [Concomitant]
     Indication: PRODUCT USED FOR UNKNOWN INDICATION
  5. PROPRANOLOL [Concomitant]
     Indication: PRODUCT USED FOR UNKNOWN INDICATION
  6. REBIF [Suspect]
     Dates: start: 20120605
  7. REBIF [Suspect]
     Dates: start: 20120615

REACTIONS (10)
  - MULTIPLE SCLEROSIS RELAPSE [None]
  - PNEUMONIA [None]
  - CHRONIC OBSTRUCTIVE PULMONARY DISEASE [None]
  - CHILLS [None]
  - OSTEOMYELITIS [None]
  - GASTROENTERITIS [None]
  - STAPHYLOCOCCAL INFECTION [None]
  - HAEMATOMA [None]
  - CELLULITIS [None]
  - PYREXIA [None]
